FAERS Safety Report 9784921 (Version 1)
Quarter: 2013Q4

REPORT INFORMATION
  Report Type: Spontaneous
  Country: FR (occurrence: FR)
  Receive Date: 20131227
  Receipt Date: 20131227
  Transmission Date: 20140711
  Serious: Yes (Hospitalization)
  Sender: FDA-Public Use
  Company Number: FR-ROCHE-1324701

PATIENT
  Age: 9 Year
  Sex: Male

DRUGS (5)
  1. VALIUM [Suspect]
     Indication: PRODUCT USED FOR UNKNOWN INDICATION
     Dosage: ADMINISTRATION OF 2 DOSES OF VALIUM (8 MG).
     Route: 065
  2. RIVOTRIL [Suspect]
     Indication: PRODUCT USED FOR UNKNOWN INDICATION
     Dosage: 0.8 MG/KG OVER 10 HOURS THEN 2.2 MG/KG/DAY.
     Route: 042
     Dates: start: 20130722
  3. RIVOTRIL [Suspect]
     Route: 042
     Dates: start: 20130724
  4. GARDENAL [Suspect]
     Indication: PRODUCT USED FOR UNKNOWN INDICATION
     Route: 065
  5. MICROPAKINE [Suspect]
     Indication: PRODUCT USED FOR UNKNOWN INDICATION
     Dosage: 20 MG/KG/DAY
     Route: 065
     Dates: end: 20130725

REACTIONS (1)
  - Pancreatitis acute [Recovered/Resolved]
